FAERS Safety Report 10034861 (Version 1)
Quarter: 2014Q1

REPORT INFORMATION
  Report Type: Spontaneous
  Country: US (occurrence: None)
  Receive Date: 20140306
  Receipt Date: 20140306
  Transmission Date: 20141002
  Serious: Yes (Other)
  Sender: FDA-Public Use
  Company Number: 163-21880-13106090

PATIENT
  Age: 71 Year
  Sex: Male
  Weight: 88.45 kg

DRUGS (11)
  1. REVLIMID (LENALIDOMIDE) (10 MILLIGRAM, CAPSULES) [Suspect]
     Indication: PLASMA CELL MYELOMA
     Dosage: 10 MG, 21 IN 21 D, PO
     Route: 048
     Dates: start: 20131002
  2. DIFLUCAN (FLUCONAZOLE) [Concomitant]
  3. NIASPAN (NICOTINIC ACID) [Concomitant]
  4. CIPRO (CIPROFLOXACIN) [Concomitant]
  5. ACYCLOVIR [Concomitant]
  6. METOPROLOL SUCCINATE [Concomitant]
  7. ALLOPURINOL [Concomitant]
  8. FISH OIL [Concomitant]
  9. MULTIVITAMINS [Concomitant]
  10. ASPIRIN (ACETYLSALICYLIC ACID) [Concomitant]
  11. VASOTEC (ENALAPRIL MALEATE) [Concomitant]

REACTIONS (2)
  - Laboratory test abnormal [None]
  - Rash pruritic [None]
